FAERS Safety Report 9113204 (Version 6)
Quarter: 2013Q3

REPORT INFORMATION
  Report Type: Spontaneous
  Country: US (occurrence: US)
  Receive Date: 20130211
  Receipt Date: 20130715
  Transmission Date: 20140515
  Serious: Yes (Other)
  Sender: FDA-Public Use
  Company Number: US-PFIZER INC-2013052170

PATIENT
  Age: 78 Year
  Sex: Male
  Weight: 68.93 kg

DRUGS (7)
  1. SUTENT [Suspect]
     Indication: RENAL CANCER
     Dosage: 50 MG, DAILY (ON ONE WEEK AND OFF ONE WEEK)
     Dates: start: 20121119, end: 201303
  2. SUTENT [Suspect]
     Dosage: UNK, CYCLIC (1 WEEK ON AND 1 WEEK OFF)
     Dates: start: 20130401
  3. ATENOLOL [Concomitant]
     Indication: HYPERTENSION
     Dosage: 25 MG, 1X/DAY
  4. DIOVAN (VALSARTAN) [Concomitant]
     Dosage: UNK
  5. PROSCAR [Concomitant]
     Dosage: UNK
  6. MEDROL [Concomitant]
  7. ALLOPURINOL [Concomitant]

REACTIONS (9)
  - Urinary tract infection [Unknown]
  - Blood pressure increased [Unknown]
  - Headache [Recovered/Resolved]
  - Dizziness [Recovered/Resolved]
  - Gout [Recovered/Resolved]
  - Fatigue [Unknown]
  - Dysgeusia [Unknown]
  - Decreased appetite [Unknown]
  - Headache [Recovering/Resolving]
